FAERS Safety Report 19415473 (Version 7)
Quarter: 2022Q4

REPORT INFORMATION
  Report Type: Report from Study
  Country: BR (occurrence: BR)
  Receive Date: 20210615
  Receipt Date: 20221117
  Transmission Date: 20230113
  Serious: Yes (Other)
  Sender: FDA-Public Use
  Company Number: NVSC2020BR295782

PATIENT
  Age: 88 Year
  Sex: Female
  Weight: 46 kg

DRUGS (10)
  1. KISQALI [Suspect]
     Active Substance: RIBOCICLIB
     Indication: Breast cancer metastatic
     Dosage: 200 MG, QD (1 TABLET, DAILY FOR 21 DAYS)
     Route: 048
     Dates: start: 20201027
  2. KISQALI [Suspect]
     Active Substance: RIBOCICLIB
     Dosage: 1 DOSAGE FORM, QD
     Route: 065
  3. KISQALI [Suspect]
     Active Substance: RIBOCICLIB
     Dosage: 200 MG, QD (1 TABLET A DAY FOR 21 DAYS)
     Route: 048
     Dates: start: 202009
  4. KISQALI [Suspect]
     Active Substance: RIBOCICLIB
     Dosage: 1 DOSAGE FORM, QD (1 PER DAY, WITH A 21- DAY CYCLE AND 7 STOP DAYS)
     Route: 048
     Dates: start: 202010
  5. KISQALI [Suspect]
     Active Substance: RIBOCICLIB
     Dosage: 1 DOSAGE FORM
     Route: 065
     Dates: start: 20221021
  6. SIMVASTATIN [Suspect]
     Active Substance: SIMVASTATIN
     Indication: Product used for unknown indication
     Dosage: 20 MG, QD (FROM MANY YEARS AGO)
     Route: 048
  7. OSCAL D [Concomitant]
     Active Substance: CALCIUM CARBONATE\CHOLECALCIFEROL
     Indication: Product used for unknown indication
     Dosage: 500 MG, QD
     Route: 048
  8. NEBIVOLOL [Concomitant]
     Active Substance: NEBIVOLOL
     Indication: Product used for unknown indication
     Dosage: 5 MG, QD
     Route: 048
  9. METAMIZOLE [Concomitant]
     Active Substance: METAMIZOLE
     Indication: Product used for unknown indication
     Dosage: 1 G (EVENTUALLY)
     Route: 048
  10. TYLEX [Concomitant]
     Indication: Product used for unknown indication
     Dosage: UNK (EVENTUALLY)
     Route: 048

REACTIONS (7)
  - Renal impairment [Unknown]
  - Blood sodium abnormal [Recovered/Resolved]
  - Blood magnesium abnormal [Recovered/Resolved]
  - Blood creatinine abnormal [Recovered/Resolved]
  - Glomerular filtration rate abnormal [Recovered/Resolved]
  - Glomerular filtration rate abnormal [Unknown]
  - Product prescribing issue [Unknown]

NARRATIVE: CASE EVENT DATE: 20210401
